FAERS Safety Report 9512559 (Version 1)
Quarter: 2013Q1

REPORT INFORMATION
  Report Type: Spontaneous
  Country: US (occurrence: None)
  Receive Date: 20130305
  Receipt Date: 20130305
  Transmission Date: 20140127
  Serious: Yes (Disabling, Other)
  Sender: FDA-Public Use
  Company Number: 163-21880-12090687

PATIENT
  Age: 71 Year
  Sex: Female
  Weight: 72.58 kg

DRUGS (2)
  1. REVLIMID [Suspect]
     Indication: MYELODYSPLASTIC SYNDROME
     Dosage: 28 IN 28 D
     Route: 048
     Dates: start: 20120811, end: 201209
  2. FLAGYL (METRONIDAZOLE) (UNKNOWN) (METRONIDAZOLE) [Concomitant]

REACTIONS (7)
  - Anaemia [None]
  - Clostridium difficile colitis [None]
  - Dehydration [None]
  - White blood cell count decreased [None]
  - Platelet count decreased [None]
  - Depression [None]
  - Weight decreased [None]
